FAERS Safety Report 7704645 (Version 2)
Quarter: 2014Q4

REPORT INFORMATION
  Report Type: Spontaneous
  Country: US (occurrence: US)
  Receive Date: 20101213
  Receipt Date: 20141219
  Transmission Date: 20150529
  Serious: Yes (Hospitalization, Other)
  Sender: FDA-Public Use
  Company Number: US-ROCHE-724546

PATIENT
  Age: 25 Year
  Sex: Female
  Weight: 61.2 kg

DRUGS (1)
  1. ACCUTANE [Suspect]
     Active Substance: ISOTRETINOIN
     Indication: ACNE
     Route: 065
     Dates: start: 1990, end: 1991

REACTIONS (4)
  - Infertility [Unknown]
  - Depression [Unknown]
  - Colitis ulcerative [Unknown]
  - Oral herpes [Unknown]

NARRATIVE: CASE EVENT DATE: 199301
